FAERS Safety Report 13148240 (Version 3)
Quarter: 2018Q3

REPORT INFORMATION
  Report Type: Spontaneous
  Country: US (occurrence: US)
  Receive Date: 20170125
  Receipt Date: 20180828
  Transmission Date: 20181010
  Serious: Yes (Other)
  Sender: FDA-Public Use
  Company Number: US-BRISTOL-MYERS SQUIBB COMPANY-BMS-2017-003083

PATIENT
  Sex: Male

DRUGS (1)
  1. SPRYCEL [Suspect]
     Active Substance: DASATINIB
     Indication: CHRONIC MYELOID LEUKAEMIA
     Dosage: 100 MG, QD
     Route: 048
     Dates: start: 20161214

REACTIONS (6)
  - Abdominal discomfort [Unknown]
  - Abdominal pain upper [Unknown]
  - Depression [Unknown]
  - Fatigue [Unknown]
  - Chromaturia [Unknown]
  - Neoplasm [Unknown]
